FAERS Safety Report 6011454-1 (Version None)
Quarter: 2008Q4

REPORT INFORMATION
  Report Type: 
  Country: None (occurrence: None)
  Receive Date: 20081218
  Receipt Date: 20031114
  Transmission Date: 20090506
  Serious: Yes (Death)
  Sender: FDA-Public Use
  Company Number: FR-ROCHE-351847

PATIENT
  Sex: Male

DRUGS (14)
  1. VALIUM [Suspect]
     Indication: DRUG USE FOR UNKNOWN INDICATION
     Route: 048
     Dates: start: 20030516, end: 20030607
  2. NARCOZEP [Suspect]
     Indication: DRUG USE FOR UNKNOWN INDICATION
     Dosage: DOSAGE REPORTED AS 60 GAMMA/KG/HOUR.
     Route: 042
     Dates: start: 20030605
  3. NARCOZEP [Suspect]
     Dosage: INCREASED TO 100 GAMMA/KG/HOUR.
     Route: 042
     Dates: start: 20030607
  4. TRACLEER [Suspect]
     Indication: DRUG USE FOR UNKNOWN INDICATION
     Route: 048
     Dates: start: 20030516, end: 20030525
  5. TRACLEER [Suspect]
     Route: 048
     Dates: start: 20030526
  6. LASILIX [Suspect]
     Indication: DRUG USE FOR UNKNOWN INDICATION
     Route: 048
     Dates: start: 20030518
  7. LASILIX [Suspect]
     Route: 048
     Dates: start: 20030522
  8. FENTANYL ^JANSSEN^ [Suspect]
     Indication: DRUG USE FOR UNKNOWN INDICATION
     Dosage: DOSAGE REPORTED AS 2.
     Route: 042
     Dates: start: 20030605
  9. FENTANYL ^JANSSEN^ [Suspect]
     Dosage: DOSAGE REPORTED AS 10.
     Route: 042
     Dates: start: 20030607
  10. DIAMOX [Suspect]
     Indication: DRUG USE FOR UNKNOWN INDICATION
     Route: 048
     Dates: start: 20030522
  11. PIPERACILLINE [Concomitant]
  12. AUGMENTIN '125' [Concomitant]
     Indication: INFECTION
     Dates: start: 20030605
  13. VANCOMYCIN HCL [Concomitant]
     Indication: INFECTION
     Dates: start: 20030605
  14. AMIKIN [Concomitant]
     Indication: INFECTION
     Dates: start: 20030605

REACTIONS (1)
  - DEATH [None]
